FAERS Safety Report 19873134 (Version 1)
Quarter: 2021Q3

REPORT INFORMATION
  Report Type: Spontaneous
  Country: GB (occurrence: GB)
  Receive Date: 20210922
  Receipt Date: 20210922
  Transmission Date: 20211014
  Serious: Yes (Other)
  Sender: FDA-Public Use
  Company Number: GB-MYLANLABS-2021M1064182

PATIENT
  Age: 64 Year
  Sex: Female
  Weight: 118 kg

DRUGS (5)
  1. ESTRIOL [Concomitant]
     Active Substance: ESTRIOL
     Dosage: APPLY AT NIGHT FOR 2 WEEKS THEN TWICE WEEKLY.
     Dates: start: 20200415
  2. AMLODIPINE [Suspect]
     Active Substance: AMLODIPINE BESYLATE
     Indication: PRODUCT USED FOR UNKNOWN INDICATION
     Dosage: 5 MILLIGRAM, QD, IN MORNING.
     Route: 002
     Dates: start: 20210902
  3. AMOXICILLIN. [Concomitant]
     Active Substance: AMOXICILLIN
     Dosage: 1 DOSAGE FORM, QD
     Dates: start: 20210713, end: 20210720
  4. LERCANIDIPINE HYDROCHLORIDE [Concomitant]
     Active Substance: LERCANIDIPINE HYDROCHLORIDE
     Dosage: 1 DOSAGE FORM, QD
     Dates: start: 20210820
  5. FOLIC ACID. [Concomitant]
     Active Substance: FOLIC ACID
     Dosage: 1 DOSAGE FORM, QD
     Dates: start: 20210225

REACTIONS (3)
  - Skin reaction [Unknown]
  - Swelling face [Recovering/Resolving]
  - Peripheral swelling [Unknown]

NARRATIVE: CASE EVENT DATE: 20210915
